FAERS Safety Report 6678119-4 (Version None)
Quarter: 2010Q2

REPORT INFORMATION
  Report Type: 
  Country: None (occurrence: None)
  Receive Date: 20100409
  Receipt Date: 20100409
  Transmission Date: 20101027
  Serious: Yes (Hospitalization)
  Sender: FDA-Public Use
  Company Number: None

PATIENT
  Sex: Female
  Weight: 64 kg

DRUGS (1)
  1. MEMANTINE HCL [Suspect]
     Dosage: 380 MG

REACTIONS (1)
  - DIARRHOEA HAEMORRHAGIC [None]
